FAERS Safety Report 7090313-X (Version None)
Quarter: 2010Q4

REPORT INFORMATION
  Report Type: 
  Country: None (occurrence: None)
  Receive Date: 20101109
  Receipt Date: 20101102
  Transmission Date: 20110411
  Serious: Yes (Other)
  Sender: FDA-Public Use
  Company Number: US-JNJFOC-20101101451

PATIENT
  Sex: Female

DRUGS (5)
  1. NUCYNTA [Suspect]
     Indication: ANALGESIC THERAPY
     Route: 048
  2. NAPRELAN [Concomitant]
     Indication: ANTIINFLAMMATORY THERAPY
     Route: 048
  3. LORTAB [Concomitant]
     Indication: ANALGESIC THERAPY
     Route: 048
  4. PERCOCET [Concomitant]
     Indication: ANALGESIC THERAPY
     Route: 048
  5. LYRICA [Concomitant]
     Indication: PRODUCT USED FOR UNKNOWN INDICATION
     Route: 065

REACTIONS (1)
  - SKIN ULCER [None]
